FAERS Safety Report 8089988-8 (Version None)
Quarter: 2012Q1

REPORT INFORMATION
  Report Type: 
  Country: None (occurrence: None)
  Receive Date: 20120129
  Receipt Date: 20110920
  Transmission Date: 20120608
  Serious: No
  Sender: FDA-Public Use
  Company Number: US-ABBOTT-11P-163-0857304-00

PATIENT
  Sex: Female
  Weight: 65.83 kg

DRUGS (6)
  1. LORATADINE [Concomitant]
     Indication: HYPERSENSITIVITY
     Route: 048
  2. LEVOTHYROXINE SODIUM [Concomitant]
     Indication: PRODUCT USED FOR UNKNOWN INDICATION
  3. HUMIRA [Suspect]
     Indication: PSORIASIS
     Dosage: 1ST LOADING DOSE, PSORIASIS STARTER KIT
     Route: 058
     Dates: start: 20110601, end: 20110601
  4. HUMIRA [Suspect]
     Route: 058
     Dates: start: 20110601
  5. CITALOPRAM [Concomitant]
     Indication: DEPRESSION
  6. MULTI-VITAMIN [Concomitant]
     Indication: VITAMIN SUPPLEMENTATION
     Route: 048

REACTIONS (5)
  - INJECTION SITE ERYTHEMA [None]
  - INJECTION SITE PRURITUS [None]
  - INJECTION SITE PAIN [None]
  - INJECTION SITE WARMTH [None]
  - INJECTION SITE URTICARIA [None]
